FAERS Safety Report 6280307-6 (Version None)
Quarter: 2009Q3

REPORT INFORMATION
  Report Type: 
  Country: None (occurrence: None)
  Receive Date: 20090724
  Receipt Date: 20070607
  Transmission Date: 20100115
  Serious: Yes (Other)
  Sender: FDA-Public Use
  Company Number: US-ASTRAZENECA-2006UW07886

PATIENT
  Age: 17309 Day
  Sex: Female
  Weight: 152 kg

DRUGS (23)
  1. SEROQUEL [Suspect]
     Indication: DEPRESSION
     Dosage: STRENGTH-  25MG, 100MG, 200MG, 300MG.  DOSE 25MG TO 1200 MG
     Route: 048
     Dates: start: 20010829
  2. SEROQUEL [Suspect]
     Dosage: 200 MG TO 800 MG
     Route: 048
     Dates: start: 20010901, end: 20061107
  3. SEROQUEL [Suspect]
     Dosage: 50 MG - 200 MG
     Route: 048
     Dates: start: 20020701
  4. RISPERDAL [Concomitant]
     Dosage: 3 MG - 4 MG
     Route: 048
     Dates: start: 20000121, end: 20001026
  5. ZYPREXA [Concomitant]
     Dosage: 7.5 MG - 10 MG
     Route: 048
     Dates: start: 19980206, end: 20010810
  6. CLOZARIL [Concomitant]
     Route: 048
  7. XANAX [Concomitant]
     Indication: ANXIETY
     Dosage: DOSE 0.5 MG TO 1 MG DAILY
     Route: 048
  8. PROZAC [Concomitant]
     Dosage: DOSE 20 MG TO 40 MG DAILY
     Route: 048
  9. BENADRYL [Concomitant]
     Dosage: 50 MG ONE TO TWO TABLET AT NIGHT
     Route: 048
  10. TEGRETOL [Concomitant]
     Dosage: DOSE 200 MG TO 600 MG.
     Route: 048
  11. CRESTOR [Concomitant]
  12. HYDROCHLOROTHIAZIDE [Concomitant]
     Route: 048
  13. ABILIFY [Concomitant]
     Dosage: 5 MG TO 15 MG DAILY
     Route: 048
  14. LEXAPRO [Concomitant]
     Indication: DEPRESSION
     Dosage: DOSE 10 MG TO 20 MG
     Route: 048
  15. CLONAZEPAM [Concomitant]
     Indication: ANXIETY
     Dosage: DOSE 1 MG TO 1.5 MG AS REQUIRED
     Route: 048
  16. AVANDIA [Concomitant]
     Route: 048
  17. PENICILLIN VK [Concomitant]
     Route: 048
  18. TRAZODONE [Concomitant]
     Dosage: DOSE 50 MG TO 100 MG AT NIGHT
     Route: 048
  19. CARBAMAZEPINE [Concomitant]
     Route: 048
  20. ASPIRIN [Concomitant]
     Route: 048
  21. MAVIK [Concomitant]
     Route: 048
  22. ZIAC [Concomitant]
     Indication: HYPERTENSION
     Dosage: DOSE-  2.5MG/5MG -  2.5MG/6.25 MG DAILY
     Route: 048
  23. LIPITOR [Concomitant]
     Route: 048

REACTIONS (5)
  - DIABETES MELLITUS [None]
  - INJURY [None]
  - NEUROPATHY PERIPHERAL [None]
  - VISION BLURRED [None]
  - WEIGHT INCREASED [None]
